FAERS Safety Report 8461576-0 (Version None)
Quarter: 2012Q2

REPORT INFORMATION
  Report Type: 
  Country: None (occurrence: None)
  Receive Date: 20120625
  Receipt Date: 20120618
  Transmission Date: 20120825
  Serious: Yes (Other)
  Sender: FDA-Public Use
  Company Number: PHEH2011US01965

PATIENT
  Sex: Male
  Weight: 113.38 kg

DRUGS (16)
  1. SOTALOL HCL [Concomitant]
     Dosage: 120 MG, BID
  2. GLEEVEC [Interacting]
     Indication: NEOPLASM MALIGNANT
  3. LISINOPRIL [Concomitant]
     Dosage: 20 MG, QD
  4. NIASPAN [Suspect]
     Indication: BLOOD TRIGLYCERIDES INCREASED
     Dosage: 500 MG, BID
     Route: 048
     Dates: start: 20110101
  5. PRAVASTATIN [Concomitant]
     Dosage: 40 MG, QD
  6. FLUOXETINE [Concomitant]
     Dosage: 20 MG, QD
  7. ISOSORBIDE MONONITRATE [Concomitant]
     Dosage: 30 MG, QD
  8. CARVEDILOL [Concomitant]
     Dosage: 25 MG, BID
  9. FENOFIBRATE [Concomitant]
     Dosage: 160 MG, QD
  10. FISH OIL [Concomitant]
     Dosage: 40000 MG, QD
  11. GLEEVEC [Interacting]
     Indication: CHRONIC MYELOID LEUKAEMIA
     Dosage: 400 MG, QD
     Route: 048
  12. COUMADIN [Interacting]
     Dosage: 5 MG, UNK
  13. ZETIA [Concomitant]
     Dosage: 10 MG, QD
  14. TEMAZEPAM [Concomitant]
     Dosage: 30 MG, QD
  15. OMEPRAZOLE [Concomitant]
     Dosage: 20 MG, QD
  16. EZETIMIBE [Concomitant]
     Dosage: 10 MG, UNK

REACTIONS (7)
  - CARDIAC DISORDER [None]
  - CONTUSION [None]
  - NAUSEA [None]
  - DRUG LEVEL DECREASED [None]
  - POTENTIATING DRUG INTERACTION [None]
  - MALAISE [None]
  - WEIGHT DECREASED [None]
